FAERS Safety Report 11642078 (Version 1)
Quarter: 2015Q4

REPORT INFORMATION
  Report Type: Spontaneous
  Country: US (occurrence: US)
  Receive Date: 20151019
  Receipt Date: 20151019
  Transmission Date: 20160304
  Serious: No
  Sender: FDA-Public Use
  Company Number: US-MISSION PHARMACAL COMPANY-1043143

PATIENT
  Age: 36 Year
  Sex: Female

DRUGS (1)
  1. THIOLA [Suspect]
     Active Substance: TIOPRONIN
     Indication: CYSTINURIA
     Route: 048

REACTIONS (4)
  - Discomfort [None]
  - Aspiration [None]
  - Dyspnoea [None]
  - Incorrect route of drug administration [Unknown]

NARRATIVE: CASE EVENT DATE: 20150805
